FAERS Safety Report 9508883 (Version 2)
Quarter: 2013Q3

REPORT INFORMATION
  Report Type: Spontaneous
  Country: US (occurrence: US)
  Receive Date: 20130909
  Receipt Date: 20130909
  Transmission Date: 20140515
  Serious: Yes (Hospitalization)
  Sender: FDA-Public Use
  Company Number: US-BRISTOL-MYERS SQUIBB COMPANY-19010842

PATIENT
  Sex: Female

DRUGS (2)
  1. ABILIFY INJECTION [Suspect]
     Dosage: 2ND DOSE-05JUN13
     Route: 030
     Dates: start: 201305
  2. ABILIFY TABS [Suspect]
     Route: 048

REACTIONS (1)
  - Blood glucose increased [Unknown]
